FAERS Safety Report 15813466 (Version 1)
Quarter: 2019Q1

REPORT INFORMATION
  Report Type: Spontaneous
  Country: CH (occurrence: CH)
  Receive Date: 20190111
  Receipt Date: 20190111
  Transmission Date: 20190417
  Serious: Yes (Hospitalization)
  Sender: FDA-Public Use
  Company Number: CH-BAYER-2019-006060

PATIENT
  Age: 78 Year
  Sex: Female
  Weight: 58.1 kg

DRUGS (5)
  1. CONCOR [Suspect]
     Active Substance: BISOPROLOL FUMARATE
     Dosage: 5 MG, UNK
     Route: 048
  2. COAPROVEL [Suspect]
     Active Substance: HYDROCHLOROTHIAZIDE\IRBESARTAN
     Route: 048
     Dates: end: 20180929
  3. AMLODIPIN-MEPHA [Suspect]
     Active Substance: AMLODIPINE MESYLATE
     Dosage: 5 MG, UNK
     Route: 048
  4. ATORVASTATIN PFIZER [Concomitant]
     Active Substance: ATORVASTATIN
     Dosage: 40 MG, UNK
     Route: 048
  5. ASPIRIN CARDIO 100 MG [Suspect]
     Active Substance: ASPIRIN
     Indication: RETINAL ISCHAEMIA
     Dosage: 100 MG, UNK
     Route: 048
     Dates: start: 2016, end: 20180929

REACTIONS (2)
  - Orthostatic hypotension [Recovered/Resolved]
  - Cerebral haemorrhage [Recovering/Resolving]

NARRATIVE: CASE EVENT DATE: 20180929
